FAERS Safety Report 13296046 (Version 1)
Quarter: 2017Q1

REPORT INFORMATION
  Report Type: Spontaneous
  Country: FR (occurrence: FR)
  Receive Date: 20170304
  Receipt Date: 20170304
  Transmission Date: 20170428
  Serious: Yes (Death, Life-Threatening, Hospitalization)
  Sender: FDA-Public Use
  Company Number: FR-BAXTER-2017BAX008647

PATIENT
  Age: 70 Year
  Sex: Female

DRUGS (8)
  1. FLOUROURACIL [Suspect]
     Active Substance: FLUOROURACIL
     Indication: BREAST CANCER METASTATIC
     Dosage: FEC 100 PROTOCOL
     Route: 065
     Dates: start: 2004
  2. EPIRUBICIN [Suspect]
     Active Substance: EPIRUBICIN
     Indication: BREAST CANCER METASTATIC
     Dosage: FEC 100 PROTOCOL
     Route: 065
     Dates: start: 2004
  3. ENDOXAN 1000 MG, POUDRE POUR SOLUTION INJECTABLE [Suspect]
     Active Substance: CYCLOPHOSPHAMIDE
     Dosage: FIRST CHEMOTHERAPY COURSE
     Route: 042
     Dates: start: 20161208, end: 20161208
  4. DOCETAXEL ACCORD [Suspect]
     Active Substance: DOCETAXEL
     Indication: BREAST CANCER METASTATIC
     Dosage: FIRST CHEMOTHERAPY COURSE
     Route: 042
     Dates: start: 20161208, end: 20161208
  5. ENDOXAN 1000 MG, POUDRE POUR SOLUTION INJECTABLE [Suspect]
     Active Substance: CYCLOPHOSPHAMIDE
     Indication: BREAST CANCER METASTATIC
     Dosage: FEC 100 PROTOCOL
     Route: 065
     Dates: start: 2004
  6. NIVESTIM [Concomitant]
     Active Substance: FILGRASTIM
     Indication: PRODUCT USED FOR UNKNOWN INDICATION
     Route: 065
  7. TAHOR [Concomitant]
     Active Substance: ATORVASTATIN CALCIUM
     Indication: PRODUCT USED FOR UNKNOWN INDICATION
     Route: 065
  8. KARDEGIC [Concomitant]
     Active Substance: ASPIRIN LYSINE
     Indication: PRODUCT USED FOR UNKNOWN INDICATION
     Route: 065

REACTIONS (5)
  - Enterocolitis [Unknown]
  - Breast cancer recurrent [Unknown]
  - Colitis ischaemic [Fatal]
  - Invasive ductal breast carcinoma [Unknown]
  - Septic shock [Unknown]

NARRATIVE: CASE EVENT DATE: 201612
